FAERS Safety Report 8198923-3 (Version None)
Quarter: 2012Q1

REPORT INFORMATION
  Report Type: 
  Country: None (occurrence: None)
  Receive Date: 20120309
  Receipt Date: 20120223
  Transmission Date: 20120608
  Serious: No
  Sender: FDA-Public Use
  Company Number: US-AMGEN-USASP2011042691

PATIENT
  Sex: Female
  Weight: 54 kg

DRUGS (3)
  1. NORCO [Concomitant]
     Dosage: UNK
     Dates: start: 20081105
  2. PROLIA [Suspect]
     Dosage: 60 MG, Q6MO
     Route: 058
     Dates: start: 20110202, end: 20110817
  3. PROLIA [Suspect]
     Indication: OSTEOPOROSIS POSTMENOPAUSAL
     Dosage: 60 MG, UNK
     Route: 058
     Dates: start: 20110921

REACTIONS (6)
  - DIVERTICULUM [None]
  - POLYP [None]
  - IRRITABLE BOWEL SYNDROME [None]
  - MUSCULOSKELETAL PAIN [None]
  - BACK PAIN [None]
  - DIARRHOEA [None]
